FAERS Safety Report 5574400-0 (Version None)
Quarter: 2007Q4

REPORT INFORMATION
  Report Type: 
  Country: None (occurrence: None)
  Receive Date: 20071227
  Receipt Date: 20071217
  Transmission Date: 20080405
  Serious: Yes (Life-Threatening)
  Sender: FDA-Public Use
  Company Number: HR-BAYER-200718380GPV

PATIENT
  Sex: Male

DRUGS (3)
  1. ASPIRIN [Suspect]
     Indication: ATRIAL FIBRILLATION
     Dosage: AS USED: 100 MG
     Route: 048
  2. MARIVARIN (VARFARINUM) [Suspect]
     Indication: ATRIAL FIBRILLATION
     Route: 048
  3. LANICOR (DIGOKSINUM) [Concomitant]
     Indication: ATRIAL FIBRILLATION
     Route: 048

REACTIONS (3)
  - PERITONITIS [None]
  - SHOCK HAEMORRHAGIC [None]
  - SMALL INTESTINE GANGRENE [None]
